FAERS Safety Report 21848818 (Version 1)
Quarter: 2023Q1

REPORT INFORMATION
  Report Type: Spontaneous
  Country: GB (occurrence: None)
  Receive Date: 20230111
  Receipt Date: 20230111
  Transmission Date: 20230417
  Serious: Yes (Life-Threatening, Hospitalization, Disabling, Other)
  Sender: FDA-Public Use
  Company Number: 2023A005539

PATIENT
  Age: 60 Year
  Sex: Female
  Weight: 108 kg

DRUGS (1)
  1. ACALABRUTINIB [Suspect]
     Active Substance: ACALABRUTINIB
     Indication: Chronic lymphocytic leukaemia
     Dosage: 100 MG BD; ;
     Route: 065
     Dates: start: 20210101, end: 20221206

REACTIONS (2)
  - Aspergilloma [Recovering/Resolving]
  - Brain abscess [Recovering/Resolving]

NARRATIVE: CASE EVENT DATE: 20220601
